FAERS Safety Report 15067144 (Version 1)
Quarter: 2018Q2

REPORT INFORMATION
  Report Type: Report from Study
  Country: IT (occurrence: IT)
  Receive Date: 20180626
  Receipt Date: 20180626
  Transmission Date: 20180711
  Serious: Yes (Hospitalization)
  Sender: FDA-Public Use
  Company Number: IT-PFIZER INC-2018254235

PATIENT
  Age: 23 Year
  Sex: Female

DRUGS (2)
  1. FENTANEST [Suspect]
     Active Substance: FENTANYL CITRATE
     Indication: ANALGESIC THERAPY
     Dosage: 0.07 MG, UNK
     Route: 042
     Dates: start: 20180513, end: 20180513
  2. MORPHINE HYDROCHLORIDE [Suspect]
     Active Substance: MORPHINE HYDROCHLORIDE
     Indication: ANALGESIC THERAPY
     Dosage: 10 MG SINGLE
     Route: 042
     Dates: start: 20180513, end: 20180513

REACTIONS (2)
  - Pancreatitis [Recovering/Resolving]
  - Nausea [Recovering/Resolving]

NARRATIVE: CASE EVENT DATE: 20180513
